FAERS Safety Report 8236286-5 (Version None)
Quarter: 2012Q1

REPORT INFORMATION
  Report Type: 
  Country: None (occurrence: None)
  Receive Date: 20120327
  Receipt Date: 20120316
  Transmission Date: 20120608
  Serious: Yes (Other)
  Sender: FDA-Public Use
  Company Number: US-BAYER-2012-026654

PATIENT
  Sex: Female

DRUGS (1)
  1. MIRENA [Suspect]
     Indication: CONTRACEPTION
     Dosage: 20 MCG/24HR, CONT
     Route: 015
     Dates: start: 20100101, end: 20120101

REACTIONS (3)
  - INTRA-ABDOMINAL HAEMORRHAGE [None]
  - HAEMORRHAGIC OVARIAN CYST [None]
  - ABDOMINAL PAIN UPPER [None]
